FAERS Safety Report 11871602 (Version 1)
Quarter: 2015Q4

REPORT INFORMATION
  Report Type: Spontaneous
  Country: US (occurrence: None)
  Receive Date: 20151224
  Receipt Date: 20151224
  Transmission Date: 20160305
  Serious: Yes (Hospitalization)
  Sender: FDA-Public Use
  Company Number: None

PATIENT
  Age: 69 Year
  Sex: Female

DRUGS (10)
  1. CYCLOSPORINE. [Concomitant]
     Active Substance: CYCLOSPORINE
  2. QUINACRINE [Suspect]
     Active Substance: QUINACRINE
     Route: 048
  3. METOPROLOL [Concomitant]
     Active Substance: METOPROLOL
  4. ASPIRIN. [Concomitant]
     Active Substance: ASPIRIN
  5. DARBEPOETIN [Concomitant]
     Active Substance: DARBEPOETIN ALFA
  6. WARFARIN [Concomitant]
     Active Substance: WARFARIN
  7. FOLATE [Concomitant]
     Active Substance: FOLATE SODIUM
  8. CA/VIT D [Concomitant]
  9. ALENDRONATE [Concomitant]
     Active Substance: ALENDRONATE SODIUM
  10. PREDNISONE. [Concomitant]
     Active Substance: PREDNISONE

REACTIONS (1)
  - International normalised ratio increased [None]

NARRATIVE: CASE EVENT DATE: 20151217
